FAERS Safety Report 7485161-2 (Version None)
Quarter: 2011Q2

REPORT INFORMATION
  Report Type: 
  Country: None (occurrence: None)
  Receive Date: 20110517
  Receipt Date: 20110509
  Transmission Date: 20111010
  Serious: Yes (Hospitalization)
  Sender: FDA-Public Use
  Company Number: US-ROCHE-776484

PATIENT
  Sex: Male
  Weight: 77 kg

DRUGS (9)
  1. BEVACIZUMAB [Suspect]
     Indication: GLIOBLASTOMA MULTIFORME
     Dosage: HELD BECAUSE OF WOUND
     Route: 042
     Dates: end: 20110422
  2. TEMODAR [Suspect]
     Indication: GLIOBLASTOMA MULTIFORME
     Dosage: 100 MG
     Route: 065
  3. KEPPRA [Concomitant]
  4. SAHA [Suspect]
     Indication: GLIOBLASTOMA MULTIFORME
     Dosage: FREQUENCY: ONE WEEK ON , ONE WEEEK OFF. THERAPY HELD
     Route: 065
     Dates: end: 20110422
  5. LOVENOX [Concomitant]
  6. CORTEF [Concomitant]
  7. KLOR-CON [Concomitant]
  8. ANDRODERM [Concomitant]
  9. ULTRAM [Concomitant]
     Route: 048

REACTIONS (2)
  - ATAXIA [None]
  - FATIGUE [None]
